FAERS Safety Report 23896954 (Version 1)
Quarter: 2024Q2

REPORT INFORMATION
  Report Type: Spontaneous
  Country: US (occurrence: None)
  Receive Date: 20240524
  Receipt Date: 20240524
  Transmission Date: 20240716
  Serious: Yes (Hospitalization)
  Sender: FDA-Public Use
  Company Number: None

PATIENT
  Age: 73 Year
  Sex: Female

DRUGS (6)
  1. ZORTRESS [Suspect]
     Active Substance: EVEROLIMUS
     Indication: Renal transplant
     Dosage: FREQUENCY : TOTAL;?
     Route: 048
     Dates: start: 202003
  2. POTASSIUM [Concomitant]
     Active Substance: POTASSIUM
  3. MYCOPHENOLIC ACID [Concomitant]
     Active Substance: MYCOPHENOLIC ACID
  4. BLOOD PRESSURE DRUG [Concomitant]
  5. AMIODARONE [Concomitant]
     Active Substance: AMIODARONE
  6. IRON [Suspect]
     Active Substance: IRON

REACTIONS (4)
  - Haematological infection [None]
  - Wound [None]
  - Inflammation [None]
  - Asthenia [None]

NARRATIVE: CASE EVENT DATE: 20240427
